FAERS Safety Report 23932365 (Version 2)
Quarter: 2024Q3

REPORT INFORMATION
  Report Type: Spontaneous
  Country: US (occurrence: US)
  Receive Date: 20240603
  Receipt Date: 20240725
  Transmission Date: 20241017
  Serious: Yes (Other)
  Sender: PFIZER
  Company Number: US-PFIZER INC-PV202400070548

PATIENT
  Age: 61 Year
  Sex: Male

DRUGS (7)
  1. GEMTUZUMAB OZOGAMICIN [Suspect]
     Active Substance: GEMTUZUMAB OZOGAMICIN
     Dosage: GO 3 MG/M2 (UP TO ONE 4.5 MG VIAL) ON DAYS 1, 4 AND 7, CYCLIC
  2. CYTARABINE [Concomitant]
     Active Substance: CYTARABINE
     Dosage: 100 MG/M2 CONTINUOUS INFUSION IV FOR 7 DAYS
     Route: 042
  3. DAUNORUBICIN [Concomitant]
     Active Substance: DAUNORUBICIN
     Dosage: 60 MG/M2 IV DAILY FOR 3 DAYS
  4. ACETAMINOPHEN [Concomitant]
     Active Substance: ACETAMINOPHEN
     Dosage: UNK
  5. DIPHENHYDRAMINE [Concomitant]
     Active Substance: DIPHENHYDRAMINE
     Dosage: UNK
  6. KEFLEX [Concomitant]
     Active Substance: CEPHALEXIN
     Dosage: UNK
  7. SERTRALINE [Concomitant]
     Active Substance: SERTRALINE HYDROCHLORIDE
     Dosage: UNK

REACTIONS (7)
  - Oxygen saturation decreased [Recovered/Resolved]
  - Aspartate aminotransferase increased [Recovered/Resolved]
  - Blood bilirubin increased [Recovered/Resolved]
  - Ocular icterus [Unknown]
  - Pyrexia [Recovered/Resolved]
  - Tremor [Recovered/Resolved]
  - Chills [Recovered/Resolved]
